FAERS Safety Report 6847411-2 (Version None)
Quarter: 2010Q3

REPORT INFORMATION
  Report Type: 
  Country: None (occurrence: None)
  Receive Date: 20100716
  Receipt Date: 20100707
  Transmission Date: 20110219
  Serious: Yes (Other)
  Sender: FDA-Public Use
  Company Number: BR-JNJFOC-20100702314

PATIENT
  Sex: Female
  Weight: 70 kg

DRUGS (3)
  1. ORTHO EVRA [Suspect]
     Indication: CONTRACEPTION
     Dosage: ETHINYL ESTRADIOL 0.6 MG/ NORELGESTROMIN 6 MG
     Route: 062
  2. FLUOXETINE HCL [Concomitant]
     Indication: WEIGHT LOSS DIET
     Route: 065
  3. FENPROPOREX [Concomitant]
     Indication: WEIGHT LOSS DIET
     Route: 065

REACTIONS (3)
  - GASTRITIS [None]
  - UTERINE SPASM [None]
  - VAGINAL HAEMORRHAGE [None]
